FAERS Safety Report 9719986 (Version 1)
Quarter: 2013Q4

REPORT INFORMATION
  Report Type: Report from Study
  Country: PL (occurrence: PL)
  Receive Date: 20131128
  Receipt Date: 20131128
  Transmission Date: 20140711
  Serious: Yes (Other)
  Sender: FDA-Public Use
  Company Number: PL-ROCHE-1306638

PATIENT
  Sex: Male

DRUGS (2)
  1. INTERFERON ALFA-2A [Suspect]
     Indication: HEPATITIS C
     Route: 065
  2. RIBAVIRIN [Suspect]
     Indication: HEPATITIS C
     Route: 065

REACTIONS (6)
  - Lymphocytic infiltration [Unknown]
  - Hepatitis C [Unknown]
  - Acanthosis [Unknown]
  - Immunodeficiency [Unknown]
  - Tonsillitis [Unknown]
  - Bronchitis [Unknown]
